FAERS Safety Report 23191590 (Version 1)
Quarter: 2023Q4

REPORT INFORMATION
  Report Type: Spontaneous
  Country: US (occurrence: None)
  Receive Date: 20231115
  Receipt Date: 20231115
  Transmission Date: 20240110
  Serious: Yes (Disabling)
  Sender: FDA-Public Use
  Company Number: None

PATIENT
  Age: 29 Year
  Sex: Male
  Weight: 105.75 kg

DRUGS (2)
  1. HIZENTRA [Suspect]
     Active Substance: HUMAN IMMUNOGLOBULIN G
     Indication: Dermatomyositis
     Dates: start: 20231108
  2. trintrillex [Concomitant]

REACTIONS (3)
  - Infusion related reaction [None]
  - Infusion site cellulitis [None]
  - Infusion site abscess [None]

NARRATIVE: CASE EVENT DATE: 20231030
